FAERS Safety Report 4468921-1 (Version None)
Quarter: 2004Q4

REPORT INFORMATION
  Report Type: 
  Country: None (occurrence: None)
  Receive Date: 20041005
  Receipt Date: 20040927
  Transmission Date: 20050328
  Serious: No
  Sender: FDA-Public Use
  Company Number: A01200404344

PATIENT
  Age: 71 Year
  Sex: Male

DRUGS (5)
  1. PLAVIX [Suspect]
     Indication: ARTERITIS
     Dosage: 75 MG OD
     Route: 048
     Dates: start: 19991223
  2. KARDEGIC - (ACETYLSALICYLATE LYSINE) - UNKNOWN - UNIT DOSE : UNKNOWN [Suspect]
     Indication: ARTERITIS
     Dosage: 75 MG QD
     Route: 048
     Dates: start: 20030612
  3. MICARDIS 80 (TELMISARTAN) [Concomitant]
  4. LESCOL LP (FLUVASTATIN SODIUM) [Concomitant]
  5. AMARYL [Concomitant]

REACTIONS (7)
  - CARDIAC DISORDER [None]
  - CEREBRAL CYST [None]
  - CRANIOPHARYNGIOMA BENIGN [None]
  - DISEASE RECURRENCE [None]
  - FIBRIN D DIMER INCREASED [None]
  - PHLEBITIS DEEP [None]
  - VISUAL DISTURBANCE [None]
